FAERS Safety Report 8180102-7 (Version None)
Quarter: 2012Q1

REPORT INFORMATION
  Report Type: 
  Country: None (occurrence: None)
  Receive Date: 20120302
  Receipt Date: 20120302
  Transmission Date: 20120608
  Serious: Yes (Other)
  Sender: FDA-Public Use
  Company Number: None

PATIENT
  Age: 31 Year
  Sex: Female

DRUGS (1)
  1. RIVAROXABAN [Suspect]
     Indication: ATRIAL FIBRILLATION
     Dosage: 20.0 MG
     Route: 048
     Dates: start: 20111212, end: 20120210

REACTIONS (4)
  - MYALGIA [None]
  - HEADACHE [None]
  - VISION BLURRED [None]
  - MENORRHAGIA [None]
